FAERS Safety Report 12817106 (Version 1)
Quarter: 2016Q4

REPORT INFORMATION
  Report Type: Report from Study
  Country: US (occurrence: US)
  Receive Date: 20161005
  Receipt Date: 20161005
  Transmission Date: 20170207
  Serious: No
  Sender: FDA-Public Use
  Company Number: US-AMGEN-USASP2015133390

PATIENT
  Age: 63 Year
  Sex: Female

DRUGS (1)
  1. PROLIA [Suspect]
     Active Substance: DENOSUMAB
     Indication: PRODUCT USED FOR UNKNOWN INDICATION
     Dosage: UNK
     Route: 065
     Dates: start: 201412

REACTIONS (7)
  - Skin haemorrhage [Unknown]
  - Rash [Unknown]
  - Scratch [Unknown]
  - Activities of daily living impaired [Unknown]
  - Paraesthesia [Unknown]
  - Swelling [Unknown]
  - Skin disorder [Not Recovered/Not Resolved]
